FAERS Safety Report 24334551 (Version 1)
Quarter: 2024Q3

REPORT INFORMATION
  Report Type: Spontaneous
  Country: US (occurrence: US)
  Receive Date: 20240918
  Receipt Date: 20240918
  Transmission Date: 20241017
  Serious: No
  Sender: KARYOPHARM THERAPEUTICS
  Company Number: US-KARYOPHARM-2024KPT001291

PATIENT

DRUGS (25)
  1. XPOVIO [Suspect]
     Active Substance: SELINEXOR
     Indication: Plasma cell myeloma
     Dosage: 40 MG, 2X/WEEK
     Route: 048
     Dates: start: 20240708, end: 2024
  2. XPOVIO [Suspect]
     Active Substance: SELINEXOR
     Dosage: 40 MG, QD
     Route: 048
     Dates: start: 2024
  3. WELCHOL [Concomitant]
     Active Substance: COLESEVELAM HYDROCHLORIDE
  4. AMBIEN [Concomitant]
     Active Substance: ZOLPIDEM TARTRATE
  5. ZIAC [Concomitant]
     Active Substance: BISOPROLOL FUMARATE\HYDROCHLOROTHIAZIDE
  6. CYCLOPHOSPHAMIDE [Concomitant]
     Active Substance: CYCLOPHOSPHAMIDE
  7. DARZALEX [Concomitant]
     Active Substance: DARATUMUMAB
  8. ACYCLOVIR [Concomitant]
     Active Substance: ACYCLOVIR
  9. BACTRIM [Concomitant]
     Active Substance: SULFAMETHOXAZOLE\TRIMETHOPRIM
  10. BORTEZOMIB [Concomitant]
     Active Substance: BORTEZOMIB
  11. DEXAMETHASONE [Concomitant]
     Active Substance: DEXAMETHASONE
  12. DIPHENHYDRAMINE [Concomitant]
     Active Substance: DIPHENHYDRAMINE
  13. EMPLICITI [Concomitant]
     Active Substance: ELOTUZUMAB
  14. FAMOTIDINE [Concomitant]
     Active Substance: FAMOTIDINE
  15. GABAPENTIN [Concomitant]
     Active Substance: GABAPENTIN
  16. HEPARIN SODIUM [Concomitant]
     Active Substance: HEPARIN SODIUM
  17. HYDROCORTISONE [Concomitant]
     Active Substance: HYDROCORTISONE\HYDROCORTISONE ACETATE
  18. LEVOTHYROXINE [Concomitant]
     Active Substance: LEVOTHYROXINE\LEVOTHYROXINE SODIUM
  19. ONDANSETRON [Concomitant]
     Active Substance: ONDANSETRON
  20. SPECTAZOLE [Concomitant]
     Active Substance: ECONAZOLE NITRATE
  21. WESTCORT [Concomitant]
     Active Substance: HYDROCORTISONE VALERATE
  22. ZOMETA [Concomitant]
     Active Substance: ZOLEDRONIC ACID
  23. POTASSIUM CHLORIDE [Concomitant]
     Active Substance: POTASSIUM CHLORIDE
  24. NIACINAMIDE [Concomitant]
     Active Substance: NIACINAMIDE
  25. FERROUS SULFATE [Concomitant]
     Active Substance: FERROUS SULFATE

REACTIONS (6)
  - Insomnia [Unknown]
  - Gallbladder disorder [Unknown]
  - Asthenia [Not Recovered/Not Resolved]
  - Diarrhoea [Not Recovered/Not Resolved]
  - Blood sodium decreased [Unknown]
  - Decreased appetite [Unknown]

NARRATIVE: CASE EVENT DATE: 20240701
